FAERS Safety Report 10311014 (Version 1)
Quarter: 2014Q3

REPORT INFORMATION
  Report Type: Spontaneous
  Country: GB (occurrence: None)
  Receive Date: 20140714
  Receipt Date: 20140714
  Transmission Date: 20150326
  Serious: Yes (Other)
  Sender: FDA-Public Use
  Company Number: INC-14-000182

PATIENT
  Age: 67 Year
  Sex: Female
  Weight: 82 kg

DRUGS (13)
  1. LOSARTAN (LOSARTAN) [Concomitant]
     Active Substance: LOSARTAN
  2. GABAPENTIN (GABAPENTINE) [Concomitant]
  3. ZAPAIN (CODEINE PHOSPHATE, PARACETAMOL) [Concomitant]
  4. OFTAQUIX [Suspect]
     Active Substance: LEVOFLOXACIN
     Dosage: EYE DROPS.
  5. CLARITHROMYCIN (CLARITHROMYCIN) [Concomitant]
     Active Substance: CLARITHROMYCIN
  6. AMOXICILLIN (AMOXICILLIN) [Concomitant]
     Active Substance: AMOXICILLIN
  7. ATENOLOL (ATENOLOL) [Concomitant]
     Active Substance: ATENOLOL
  8. ATORVASTATIN (ATORVASTATIN) [Concomitant]
     Active Substance: ATORVASTATIN
  9. OMEPRAZOLE (OMEPRAZOLE) [Concomitant]
     Active Substance: OMEPRAZOLE
  10. RANITIDINE [Concomitant]
     Active Substance: RANITIDINE\RANITIDINE HYDROCHLORIDE
  11. ASPIRIN (ACETYLSALICYLIC ACID) [Concomitant]
     Active Substance: ASPIRIN
  12. CORSODYL (CHLORHEXIDINE GLUCONATE) [Concomitant]
  13. PHENOXYMETHYLPENICILLIN (PHENOXYMETHYLPENICILLIN)? [Concomitant]

REACTIONS (2)
  - Mouth swelling [None]
  - Oral discomfort [None]

NARRATIVE: CASE EVENT DATE: 20140624
